FAERS Safety Report 16549074 (Version 4)
Quarter: 2020Q2

REPORT INFORMATION
  Report Type: Spontaneous
  Country: DE (occurrence: DE)
  Receive Date: 20190709
  Receipt Date: 20200429
  Transmission Date: 20200713
  Serious: Yes (Death, Life-Threatening, Hospitalization, Other)
  Sender: FDA-Public Use
  Company Number: DE-ELI_LILLY_AND_COMPANY-DE201907002854

PATIENT
  Age: 33 Year
  Sex: Male

DRUGS (7)
  1. CISPLATIN. [Suspect]
     Active Substance: CISPLATIN
  2. CISPLATIN. [Suspect]
     Active Substance: CISPLATIN
  3. GEMCITABINE HYDROCHLORIDE. [Suspect]
     Active Substance: GEMCITABINE HYDROCHLORIDE
     Indication: MALIGNANT NEOPLASM PROGRESSION
     Dosage: UNK, UNKNOWN
     Route: 065
  4. CISPLATIN. [Suspect]
     Active Substance: CISPLATIN
     Indication: CHOLANGIOCARCINOMA
     Dosage: 25 MG/M2, CYCLICAL
     Route: 042
  5. CISPLATIN. [Suspect]
     Active Substance: CISPLATIN
     Indication: MALIGNANT NEOPLASM PROGRESSION
     Dosage: 50 MG/M2, CYCLICAL
     Route: 042
  6. GEMCITABINE HYDROCHLORIDE. [Suspect]
     Active Substance: GEMCITABINE HYDROCHLORIDE
     Indication: CHOLANGIOCARCINOMA
     Dosage: 500 MG/M2, CYCLICAL 500 MG/M2
     Route: 042
  7. CISPLATIN. [Suspect]
     Active Substance: CISPLATIN

REACTIONS (6)
  - Toxicity to various agents [Fatal]
  - Enterococcal bacteraemia [Fatal]
  - Enterococcal infection [Fatal]
  - Bone marrow failure [Fatal]
  - Febrile neutropenia [Fatal]
  - Pancytopenia [Fatal]
